FAERS Safety Report 12303592 (Version 2)
Quarter: 2016Q2

REPORT INFORMATION
  Report Type: Spontaneous
  Country: US (occurrence: US)
  Receive Date: 20160426
  Receipt Date: 20160609
  Transmission Date: 20160815
  Serious: No
  Sender: FDA-Public Use
  Company Number: US-JNJFOC-20160330059

PATIENT
  Age: 53 Year
  Sex: Female
  Weight: 77.11 kg

DRUGS (7)
  1. RISPERDAL CONSTA [Suspect]
     Active Substance: RISPERIDONE
     Indication: SCHIZOAFFECTIVE DISORDER
     Route: 030
     Dates: start: 20150301
  2. BENZATROPINE [Concomitant]
     Active Substance: BENZTROPINE
     Indication: TREMOR
     Route: 065
     Dates: start: 20130201
  3. PERPHENAZINE. [Concomitant]
     Active Substance: PERPHENAZINE
     Indication: ANXIETY DISORDER
     Route: 048
     Dates: start: 20130201
  4. RISPERIDONE. [Concomitant]
     Active Substance: RISPERIDONE
     Indication: ANXIETY DISORDER
     Route: 048
     Dates: start: 20130201
  5. KLONOPIN [Concomitant]
     Active Substance: CLONAZEPAM
     Route: 048
  6. CLONAZEPAM. [Concomitant]
     Active Substance: CLONAZEPAM
     Indication: SLEEP DISORDER
     Route: 065
     Dates: start: 20150301
  7. LEVOTHYROXINE. [Concomitant]
     Active Substance: LEVOTHYROXINE
     Indication: THYROID DISORDER
     Route: 048
     Dates: start: 20101201

REACTIONS (6)
  - Device malfunction [Unknown]
  - Product quality issue [Unknown]
  - Product packaging quantity issue [Unknown]
  - Syringe issue [None]
  - Drug dose omission [Unknown]
  - Product reconstitution issue [None]

NARRATIVE: CASE EVENT DATE: 20160331
